FAERS Safety Report 12218605 (Version 2)
Quarter: 2016Q2

REPORT INFORMATION
  Report Type: Spontaneous
  Country: CH (occurrence: CH)
  Receive Date: 20160329
  Receipt Date: 20160608
  Transmission Date: 20160815
  Serious: Yes (Life-Threatening, Hospitalization, Other)
  Sender: FDA-Public Use
  Company Number: CH-MDT-ADR-2016-00327

PATIENT
  Sex: Female

DRUGS (2)
  1. UNSPECIFIED MEDICATIONS [Suspect]
     Active Substance: UNSPECIFIED INGREDIENT
  2. LIORESAL [Suspect]
     Active Substance: BACLOFEN
     Dosage: 400.3MCG/DAY
     Route: 037

REACTIONS (4)
  - Amnesia [None]
  - Fall [None]
  - Pain [None]
  - Muscle spasticity [None]
